FAERS Safety Report 21576973 (Version 3)
Quarter: 2023Q1

REPORT INFORMATION
  Report Type: Spontaneous
  Country: US (occurrence: US)
  Receive Date: 20221110
  Receipt Date: 20230201
  Transmission Date: 20230417
  Serious: Yes (Other)
  Sender: FDA-Public Use
  Company Number: US-SA-2022SA460277

PATIENT
  Age: 21 Year
  Sex: Female

DRUGS (1)
  1. NEXVIAZYME [Suspect]
     Active Substance: AVALGLUCOSIDASE ALFA-NGPT
     Dosage: 650 MG, QOW
     Route: 041

REACTIONS (6)
  - Colitis ulcerative [Unknown]
  - Condition aggravated [Unknown]
  - Haematochezia [Unknown]
  - Malaise [Unknown]
  - Pallor [Unknown]
  - Fatigue [Unknown]
